FAERS Safety Report 16663568 (Version 2)
Quarter: 2019Q3

REPORT INFORMATION
  Report Type: Spontaneous
  Country: CA (occurrence: CA)
  Receive Date: 20190802
  Receipt Date: 20190802
  Transmission Date: 20191004
  Serious: Yes (Other)
  Sender: FDA-Public Use
  Company Number: CA-JNJFOC-20190800971

PATIENT
  Sex: Female
  Weight: 66.4 kg

DRUGS (1)
  1. SIMPONI [Suspect]
     Active Substance: GOLIMUMAB
     Indication: PSORIATIC ARTHROPATHY
     Route: 058
     Dates: start: 20181213

REACTIONS (3)
  - Psoriatic arthropathy [Unknown]
  - Cellulitis [Unknown]
  - Drug ineffective [Unknown]
